FAERS Safety Report 10187665 (Version 1)
Quarter: 2014Q2

REPORT INFORMATION
  Report Type: Spontaneous
  Country: US (occurrence: US)
  Receive Date: 20140522
  Receipt Date: 20140522
  Transmission Date: 20141212
  Serious: No
  Sender: FDA-Public Use
  Company Number: US-SANOFI-AVENTIS-2013SA085991

PATIENT
  Age: 66 Year
  Sex: Female
  Weight: 113.39 kg

DRUGS (22)
  1. LANTUS SOLOSTAR [Suspect]
     Indication: TYPE 2 DIABETES MELLITUS
     Dosage: DOSE:34 UNIT(S)
     Route: 051
     Dates: start: 201201
  2. VICTOZA [Suspect]
     Indication: DIABETES MELLITUS
     Dosage: DOSE:1.8 UNIT(S)
     Route: 065
  3. SOLOSTAR [Concomitant]
  4. ANTITHROMBOTIC AGENTS [Concomitant]
  5. DILTIAZEM [Concomitant]
     Indication: BLOOD PRESSURE
     Route: 065
  6. CLONIDINE [Concomitant]
     Indication: BLOOD PRESSURE
     Route: 065
  7. SPIRONOLACTONE [Concomitant]
     Indication: BLOOD PRESSURE
     Route: 065
  8. LIPITOR [Concomitant]
     Indication: BLOOD PRESSURE
     Route: 065
  9. ASPIRIN [Concomitant]
     Indication: BLOOD PRESSURE
     Route: 065
  10. GLYCERYL TRINITRATE [Concomitant]
     Indication: BLOOD PRESSURE
     Route: 065
  11. ISOSORBIDE MONONITRATE [Concomitant]
     Indication: BLOOD PRESSURE
     Dosage: 60 AND 30 MG IN MORNING
     Route: 065
  12. OMEPRAZOLE [Concomitant]
     Indication: GASTROOESOPHAGEAL REFLUX DISEASE
     Route: 065
  13. FUROSEMIDE [Concomitant]
     Indication: FLUID IMBALANCE
     Dosage: 2 PILLS MORNING
     Route: 065
  14. CENTRUM [Concomitant]
     Indication: VITAMIN SUPPLEMENTATION
     Dosage: 1 PILL MORNING
     Route: 065
  15. SERTRALINE [Concomitant]
     Indication: DEPRESSION
     Dosage: DOSE - 100 MG (1 AND 1/2) AT NIGHT
     Route: 065
  16. TRAZODONE [Concomitant]
     Indication: SLEEP DISORDER
     Dosage: 1 PILL AT NIGHT
     Route: 065
  17. GABAPENTIN [Concomitant]
     Indication: NEUROPATHY PERIPHERAL
     Dosage: 1 PILL FOUR TIMES A DAY
     Route: 065
  18. SALBUTAMOL SULFATE [Concomitant]
     Indication: RESPIRATORY DISORDER
     Dosage: FORM - INHALER
     Route: 065
  19. HYDROCODONE W/APAP [Concomitant]
     Indication: ARTHRITIS
     Dosage: DOSE 10-500
     Route: 065
  20. LORCET [Concomitant]
     Indication: PAIN
     Dosage: DOSE - 10-500
     Route: 065
  21. CARVEDILOL [Concomitant]
     Indication: BLOOD PRESSURE
     Route: 065
  22. VITAMIN D [Concomitant]
     Indication: OSTEOPOROSIS
     Route: 065

REACTIONS (4)
  - Localised infection [Unknown]
  - Haemorrhage [Unknown]
  - Blood glucose increased [Unknown]
  - Incorrect product storage [Unknown]
